FAERS Safety Report 14139492 (Version 2)
Quarter: 2018Q1

REPORT INFORMATION
  Report Type: Spontaneous
  Country: US (occurrence: US)
  Receive Date: 20171028
  Receipt Date: 20180130
  Transmission Date: 20180508
  Serious: Yes (Other)
  Sender: FDA-Public Use
  Company Number: US-BAYER-2017-202064

PATIENT
  Age: 26 Year
  Sex: Female

DRUGS (1)
  1. SKYLA [Suspect]
     Active Substance: LEVONORGESTREL
     Indication: CONTRACEPTION
     Dosage: 14 MCG/24HR, CONT
     Route: 015
     Dates: start: 201505

REACTIONS (3)
  - Abdominal pain lower [None]
  - Amenorrhoea [Recovered/Resolved]
  - Genital haemorrhage [Not Recovered/Not Resolved]
